FAERS Safety Report 16647369 (Version 4)
Quarter: 2021Q2

REPORT INFORMATION
  Report Type: Spontaneous
  Country: US (occurrence: US)
  Receive Date: 20190730
  Receipt Date: 20210628
  Transmission Date: 20210716
  Serious: Yes (Other)
  Sender: FDA-Public Use
  Company Number: US-GILEAD-2019-0420236

PATIENT
  Age: 51 Year
  Sex: Male
  Weight: 95.24 kg

DRUGS (71)
  1. AMOXICILLIN. [Concomitant]
     Active Substance: AMOXICILLIN
  2. DEPAKOTE [Concomitant]
     Active Substance: DIVALPROEX SODIUM
  3. SUSTIVA [Concomitant]
     Active Substance: EFAVIRENZ
  4. MAALOX PLUS ANTACID JUNIOR [Concomitant]
  5. HEXAVITAMIN [VITAMINS NOS] [Concomitant]
  6. TRICOR [Concomitant]
     Active Substance: FENOFIBRATE
  7. DEPO TESTOSTERONE [Concomitant]
     Active Substance: TESTOSTERONE
  8. KLONOPIN [Concomitant]
     Active Substance: CLONAZEPAM
  9. TRUVADA [Suspect]
     Active Substance: EMTRICITABINE\TENOFOVIR DISOPROXIL FUMARATE
     Indication: HIV INFECTION
     Dosage: UNK
     Route: 048
     Dates: start: 201606, end: 201707
  10. DILANTIN D.A. [Concomitant]
     Active Substance: PHENYTOIN SODIUM
  11. FAMOTIDINE. [Concomitant]
     Active Substance: FAMOTIDINE
  12. PENICILLIN NOS [Concomitant]
     Active Substance: PENICILLIN
  13. TRIUMEQ [Concomitant]
     Active Substance: ABACAVIR SULFATE\DOLUTEGRAVIR SODIUM\LAMIVUDINE
  14. XANAX [Concomitant]
     Active Substance: ALPRAZOLAM
  15. ALBUTEROL HFA [Concomitant]
     Active Substance: ALBUTEROL SULFATE
  16. LIPITOR [Concomitant]
     Active Substance: ATORVASTATIN CALCIUM
  17. LISINOPRIL. [Concomitant]
     Active Substance: LISINOPRIL
  18. ROXICODONE [Concomitant]
     Active Substance: OXYCODONE HYDROCHLORIDE
  19. SYMBICORT [Concomitant]
     Active Substance: BUDESONIDE\FORMOTEROL FUMARATE DIHYDRATE
  20. COMPAZINE [Concomitant]
     Active Substance: PROCHLORPERAZINE MALEATE
  21. BACTRIM [Concomitant]
     Active Substance: SULFAMETHOXAZOLE\TRIMETHOPRIM
  22. EPZICOM [Concomitant]
     Active Substance: ABACAVIR SULFATE\LAMIVUDINE
  23. NORVIR [Concomitant]
     Active Substance: RITONAVIR
  24. PRILOSEC [Concomitant]
     Active Substance: OMEPRAZOLE MAGNESIUM
  25. PAMELOR [Concomitant]
     Active Substance: NORTRIPTYLINE HYDROCHLORIDE
  26. ANTIVERT [Concomitant]
     Active Substance: MECLIZINE HYDROCHLORIDE
  27. PERCOCET [Concomitant]
     Active Substance: ACETAMINOPHEN\OXYCODONE HYDROCHLORIDE
  28. FLOMAX [Concomitant]
     Active Substance: TAMSULOSIN HYDROCHLORIDE
  29. HEPARIN [Concomitant]
     Active Substance: HEPARIN SODIUM
  30. LITHIUM. [Concomitant]
     Active Substance: LITHIUM
  31. PROTONIX [Concomitant]
     Active Substance: PANTOPRAZOLE SODIUM
  32. NITROSTAT [Concomitant]
     Active Substance: NITROGLYCERIN
  33. FLEXERIL [Concomitant]
     Active Substance: CYCLOBENZAPRINE HYDROCHLORIDE
  34. DILAUDID [Concomitant]
     Active Substance: HYDROMORPHONE HYDROCHLORIDE
  35. REGLAN [Concomitant]
     Active Substance: METOCLOPRAMIDE HYDROCHLORIDE
  36. PLAVIX [Concomitant]
     Active Substance: CLOPIDOGREL BISULFATE
  37. BENADRYL [Concomitant]
     Active Substance: DIPHENHYDRAMINE HYDROCHLORIDE
  38. AUGMENTIN [Concomitant]
     Active Substance: AMOXICILLIN\CLAVULANATE POTASSIUM
  39. ACYCLOVIR [ACICLOVIR] [Concomitant]
     Active Substance: ACYCLOVIR
  40. CORTISONE [Concomitant]
     Active Substance: CORTISONE
  41. ESOMEPRAZOLE. [Concomitant]
     Active Substance: ESOMEPRAZOLE MAGNESIUM
  42. PREDNISONE. [Concomitant]
     Active Substance: PREDNISONE
  43. ZERIT [Concomitant]
     Active Substance: STAVUDINE
  44. EPCLUSA [Concomitant]
     Active Substance: SOFOSBUVIR\VELPATASVIR
  45. ULTRAM [Concomitant]
     Active Substance: TRAMADOL HYDROCHLORIDE
  46. PHENERGAN [Concomitant]
     Active Substance: PROMETHAZINE HYDROCHLORIDE
  47. CYANOCOBALAMIN. [Concomitant]
     Active Substance: CYANOCOBALAMIN
  48. EFFEXOR [Concomitant]
     Active Substance: VENLAFAXINE HYDROCHLORIDE
  49. FLOVENT HFA [Concomitant]
     Active Substance: FLUTICASONE PROPIONATE
  50. LORTAB [Concomitant]
     Active Substance: ACETAMINOPHEN\HYDROCODONE BITARTRATE
  51. AMITRIPTYLINE [Concomitant]
     Active Substance: AMITRIPTYLINE
  52. CRESTOR [Concomitant]
     Active Substance: ROSUVASTATIN CALCIUM
  53. HALDOL [HALOPERIDOL LACTATE] [Concomitant]
  54. TOPROL XL [Concomitant]
     Active Substance: METOPROLOL SUCCINATE
  55. LYRICA [Concomitant]
     Active Substance: PREGABALIN
  56. ADVAIR HFA [Concomitant]
     Active Substance: FLUTICASONE PROPIONATE\SALMETEROL XINAFOATE
  57. ASPIRIN (E.C.) [Concomitant]
     Active Substance: ASPIRIN
  58. LANSOPRAZOLE. [Concomitant]
     Active Substance: LANSOPRAZOLE
  59. LASIX [Concomitant]
     Active Substance: FUROSEMIDE
  60. LOVENOX [LEVOFLOXACIN] [Concomitant]
     Active Substance: LEVOFLOXACIN
  61. ZOFRAN [Concomitant]
     Active Substance: ONDANSETRON HYDROCHLORIDE
  62. ONE A DAY MEN^S [Concomitant]
     Active Substance: VITAMINS
  63. ABILIFY [Concomitant]
     Active Substance: ARIPIPRAZOLE
  64. CREON [Concomitant]
     Active Substance: PANCRELIPASE AMYLASE\PANCRELIPASE LIPASE\PANCRELIPASE PROTEASE
  65. BUSPAR [Concomitant]
     Active Substance: BUSPIRONE HYDROCHLORIDE
  66. METFORMIN [Concomitant]
     Active Substance: METFORMIN HYDROCHLORIDE
  67. ATRIPLA [Suspect]
     Active Substance: EFAVIRENZ\EMTRICITABINE\TENOFOVIR DISOPROXIL FUMARATE
     Indication: HIV INFECTION
     Dosage: UNK
     Route: 048
     Dates: start: 200608, end: 201608
  68. BIKTARVY [Concomitant]
     Active Substance: BICTEGRAVIR SODIUM\EMTRICITABINE\TENOFOVIR ALAFENAMIDE FUMARATE
  69. ATIVAN [Concomitant]
     Active Substance: LORAZEPAM
  70. ZANTAC [Concomitant]
     Active Substance: RANITIDINE HYDROCHLORIDE
  71. FLONASE ALLERGY RELIEF [Concomitant]
     Active Substance: FLUTICASONE PROPIONATE

REACTIONS (15)
  - End stage renal disease [Not Recovered/Not Resolved]
  - Nephrolithiasis [Unknown]
  - Bone loss [Not Recovered/Not Resolved]
  - Anxiety [Unknown]
  - Anhedonia [Unknown]
  - Fatigue [Unknown]
  - Pain [Unknown]
  - Economic problem [Unknown]
  - Dysuria [Unknown]
  - Osteonecrosis [Unknown]
  - Emotional distress [Unknown]
  - Renal failure [Unknown]
  - Bone density decreased [Unknown]
  - Chronic kidney disease [Not Recovered/Not Resolved]
  - Tooth loss [Recovered/Resolved]

NARRATIVE: CASE EVENT DATE: 2009
